FAERS Safety Report 6993405-6 (Version None)
Quarter: 2010Q3

REPORT INFORMATION
  Report Type: 
  Country: None (occurrence: None)
  Receive Date: 20100917
  Receipt Date: 20100714
  Transmission Date: 20110219
  Serious: No
  Sender: FDA-Public Use
  Company Number: US-ASTRAZENECA-2010SE32861

PATIENT
  Age: 56 Year
  Sex: Female
  Weight: 61.2 kg

DRUGS (3)
  1. SEROQUEL XR [Suspect]
     Indication: BIPOLAR DISORDER
     Route: 048
     Dates: start: 20100619, end: 20100630
  2. TOPAMAX [Concomitant]
  3. THYROID TAB [Concomitant]
     Indication: HYPOTHYROIDISM

REACTIONS (3)
  - DIZZINESS [None]
  - SPEECH DISORDER [None]
  - VISION BLURRED [None]
